FAERS Safety Report 8217193-0 (Version None)
Quarter: 2012Q1

REPORT INFORMATION
  Report Type: 
  Country: None (occurrence: None)
  Receive Date: 20120319
  Receipt Date: 20120305
  Transmission Date: 20120608
  Serious: Yes (Other)
  Sender: FDA-Public Use
  Company Number: AU-RANBAXY-2012RR-53735

PATIENT
  Age: 50 Year
  Sex: Male

DRUGS (8)
  1. VENLAFAXINE [Suspect]
     Indication: MENTAL DISORDER
     Dosage: 300 MG/DAY
     Route: 065
  2. CIPROFLOXACIN [Suspect]
     Indication: PRODUCT USED FOR UNKNOWN INDICATION
     Dosage: UNK
     Route: 065
  3. AMITRIPTYLINE HCL [Suspect]
     Indication: PRODUCT USED FOR UNKNOWN INDICATION
     Dosage: UNK
     Route: 065
  4. VALPROIC ACID [Suspect]
     Indication: MENTAL DISORDER
     Route: 065
  5. DIAZEPAM [Suspect]
     Indication: MENTAL DISORDER
     Dosage: UNK
     Route: 065
  6. ZOLPIDEM TARTRATE [Suspect]
     Indication: MENTAL DISORDER
     Dosage: 10 MG
     Route: 065
  7. FLUOXETINE [Suspect]
     Indication: MENTAL DISORDER
     Dosage: UNK
     Route: 065
  8. METOCLOPRAMIDE [Suspect]
     Indication: PRODUCT USED FOR UNKNOWN INDICATION
     Dosage: UNK
     Route: 065

REACTIONS (3)
  - HOMICIDE [None]
  - SOMNAMBULISM [None]
  - AKATHISIA [None]
